FAERS Safety Report 7406792-1 (Version None)
Quarter: 2011Q2

REPORT INFORMATION
  Report Type: 
  Country: None (occurrence: None)
  Receive Date: 20110411
  Receipt Date: 20110329
  Transmission Date: 20111010
  Serious: Yes (Other)
  Sender: FDA-Public Use
  Company Number: PHHY2011AR07009

PATIENT
  Age: 40 Year
  Sex: Male

DRUGS (3)
  1. THIORIDAZINE [Suspect]
     Indication: TUBERCULOSIS
  2. MOXIFLOXACIN [Suspect]
     Indication: TUBERCULOSIS
  3. LINEZOLID [Suspect]
     Indication: TUBERCULOSIS

REACTIONS (2)
  - ANAEMIA [None]
  - TRANSAMINASES INCREASED [None]
